FAERS Safety Report 7658168-X (Version None)
Quarter: 2011Q3

REPORT INFORMATION
  Report Type: 
  Country: None (occurrence: None)
  Receive Date: 20110805
  Receipt Date: 20110726
  Transmission Date: 20111222
  Serious: Yes (Hospitalization, Other)
  Sender: FDA-Public Use
  Company Number: US-JNJFOC-20110712033

PATIENT
  Sex: Male
  Weight: 78.1 kg

DRUGS (6)
  1. REMICADE [Suspect]
     Indication: CROHN'S DISEASE
     Route: 042
     Dates: start: 20060502
  2. CIPROFLOXACIN HCL [Concomitant]
  3. METRONIDAZOLE [Concomitant]
  4. PREDNISONE [Concomitant]
  5. HUMIRA [Concomitant]
     Indication: CROHN'S DISEASE
  6. REMICADE [Suspect]
     Route: 042
     Dates: start: 20100218

REACTIONS (1)
  - INTESTINAL STENOSIS [None]
